FAERS Safety Report 24075569 (Version 1)
Quarter: 2024Q3

REPORT INFORMATION
  Report Type: Spontaneous
  Country: SE (occurrence: SE)
  Receive Date: 20240710
  Receipt Date: 20240710
  Transmission Date: 20241016
  Serious: Yes (Life-Threatening, Hospitalization)
  Sender: TEVA
  Company Number: None

PATIENT
  Age: 50 Year
  Sex: Female
  Weight: 69 kg

DRUGS (5)
  1. ESCITALOPRAM [Suspect]
     Active Substance: ESCITALOPRAM OXALATE
     Indication: Depression
     Dosage: 1X1, ESCITALOPRAM ACTAVIS
     Route: 048
     Dates: start: 20231123, end: 20240502
  2. Aritonin [Concomitant]
     Indication: Product used for unknown indication
     Dosage: 1-2TN VB
     Route: 048
     Dates: start: 20210611
  3. LEVOTHYROXINE SODIUM [Concomitant]
     Active Substance: LEVOTHYROXINE SODIUM
     Indication: Product used for unknown indication
     Dosage: 1X1
     Route: 048
     Dates: start: 2014
  4. OLANZAPINE [Concomitant]
     Active Substance: OLANZAPINE
     Indication: Product used for unknown indication
     Dosage: 1-3 TN
     Route: 048
     Dates: start: 20240119, end: 20240618
  5. AGOMELATINE MYLAN [Concomitant]
     Indication: Product used for unknown indication
     Dosage: 1 AT 20
     Route: 048
     Dates: start: 20231201

REACTIONS (3)
  - Suicidal ideation [Recovered/Resolved with Sequelae]
  - Akathisia [Recovering/Resolving]
  - Anxiety [Recovered/Resolved with Sequelae]

NARRATIVE: CASE EVENT DATE: 20231218
